FAERS Safety Report 5914382-2 (Version None)
Quarter: 2008Q4

REPORT INFORMATION
  Report Type: 
  Country: None (occurrence: None)
  Receive Date: 20081009
  Receipt Date: 20080926
  Transmission Date: 20090506
  Serious: Yes (Hospitalization)
  Sender: FDA-Public Use
  Company Number: FR-GENENTECH-269043

PATIENT
  Age: 53 Year
  Sex: Male

DRUGS (6)
  1. RITUXIMAB [Suspect]
     Indication: NON-HODGKIN'S LYMPHOMA
     Dosage: 680 MG, UNK
     Route: 042
     Dates: start: 20080124
  2. CISPLATIN [Concomitant]
     Indication: DRUG USE FOR UNKNOWN INDICATION
     Dosage: 182 MG, UNK
     Dates: start: 20080124
  3. CISPLATIN [Concomitant]
     Dosage: 180 MG, UNK
     Dates: start: 20080214
  4. CISPLATIN [Concomitant]
     Dosage: 181 MG, UNK
     Dates: start: 20080306
  5. CYTARABINE [Concomitant]
     Indication: DRUG USE FOR UNKNOWN INDICATION
     Dosage: 7280 MG, UNK
     Dates: start: 20080124
  6. CYTARABINE [Concomitant]
     Dosage: 7240 MG, UNK
     Dates: start: 20080214

REACTIONS (1)
  - ANEURYSM [None]
